FAERS Safety Report 17305099 (Version 1)
Quarter: 2020Q1

REPORT INFORMATION
  Report Type: Spontaneous
  Country: US (occurrence: US)
  Receive Date: 20200106
  Receipt Date: 20200106
  Transmission Date: 20200409
  Serious: Yes (Other)
  Sender: FDA-Public Use
  Company Number: None

PATIENT
  Sex: Female

DRUGS (1)
  1. HUMIRA [Suspect]
     Active Substance: ADALIMUMAB
     Indication: RHEUMATOID ARTHRITIS
     Dosage: OTHER DOSE:40MG/0.8ML
     Route: 058
     Dates: start: 20161026

REACTIONS (3)
  - Viral infection [None]
  - Therapy cessation [None]
  - Urinary tract infection [None]
